FAERS Safety Report 7461233-3 (Version None)
Quarter: 2011Q2

REPORT INFORMATION
  Report Type: 
  Country: None (occurrence: None)
  Receive Date: 20110506
  Receipt Date: 20110426
  Transmission Date: 20111010
  Serious: Yes (Hospitalization, Other)
  Sender: FDA-Public Use
  Company Number: FR-AMGEN-FRASP2011022290

PATIENT
  Sex: Female
  Weight: 74 kg

DRUGS (4)
  1. HUMIRA [Suspect]
     Dosage: UNK
     Route: 058
     Dates: start: 20081001, end: 20100201
  2. ENBREL [Suspect]
     Indication: ANKYLOSING SPONDYLITIS
     Dosage: UNK
     Route: 058
     Dates: start: 20080601, end: 20080901
  3. REMICADE [Suspect]
     Dosage: UNK MG/KG, CYCLIC
     Route: 042
     Dates: start: 20061108, end: 20080601
  4. NOVATREX                           /00113801/ [Suspect]
     Dosage: 5 TO 15MG, WEEKLY
     Route: 048
     Dates: start: 20020101, end: 20090101

REACTIONS (15)
  - SLEEP DISORDER [None]
  - ANKYLOSING SPONDYLITIS [None]
  - TENOSYNOVITIS [None]
  - SYNOVITIS [None]
  - LIVER DISORDER [None]
  - BRONCHITIS [None]
  - ANAEMIA [None]
  - MYELODYSPLASTIC SYNDROME [None]
  - NEUTROPENIA [None]
  - PARAESTHESIA [None]
  - LYMPHOCYTE COUNT DECREASED [None]
  - LEUKOPENIA [None]
  - GASTROINTESTINAL DISORDER [None]
  - SKIN REACTION [None]
  - THERAPEUTIC RESPONSE DECREASED [None]
